FAERS Safety Report 24640951 (Version 2)
Quarter: 2025Q3

REPORT INFORMATION
  Report Type: Spontaneous
  Country: EG (occurrence: EG)
  Receive Date: 20241120
  Receipt Date: 20250803
  Transmission Date: 20251020
  Serious: Yes (Hospitalization, Other)
  Sender: ALEXION PHARMACEUTICALS
  Company Number: EG-ASTRAZENECA-202411NAF010083EG

PATIENT
  Age: 68 Year
  Sex: Male
  Weight: 98 kg

DRUGS (4)
  1. NEXIUM [Interacting]
     Active Substance: ESOMEPRAZOLE MAGNESIUM
     Dates: start: 20231119, end: 20240512
  2. NEBIVOLOL HYDROCHLORIDE [Concomitant]
     Active Substance: NEBIVOLOL HYDROCHLORIDE
     Dosage: 1 DOSAGE FORM, QD
  3. PLAVIX [Interacting]
     Active Substance: CLOPIDOGREL BISULFATE
     Dosage: 1 DOSAGE FORM, QD
     Dates: start: 20221202
  4. ATORVASTATIN CALCIUM\EZETIMIBE [Concomitant]
     Active Substance: ATORVASTATIN CALCIUM\EZETIMIBE
     Dosage: 1 UNK, QD
     Dates: start: 20221202

REACTIONS (2)
  - Myocardial infarction [Recovered/Resolved]
  - Drug interaction [Recovered/Resolved]

NARRATIVE: CASE EVENT DATE: 20240512
